FAERS Safety Report 25586830 (Version 1)
Quarter: 2025Q3

REPORT INFORMATION
  Report Type: Spontaneous
  Country: US (occurrence: US)
  Receive Date: 20250721
  Receipt Date: 20250721
  Transmission Date: 20251021
  Serious: No
  Sender: Phathom Pharmaceuticals
  Company Number: US-PHATHOM PHARMACEUTICALS INC.-2025PHT01536

PATIENT
  Age: 75 Year
  Sex: Male

DRUGS (4)
  1. VOQUEZNA [Suspect]
     Active Substance: VONOPRAZAN FUMARATE
     Dosage: 10 MG, 1X/DAY
     Route: 048
     Dates: start: 20250301, end: 20250512
  2. CLARITIN [Concomitant]
     Active Substance: LORATADINE
  3. VITAMINS NOS [Concomitant]
     Active Substance: VITAMINS
  4. ASPIRIN [Concomitant]
     Active Substance: ASPIRIN

REACTIONS (2)
  - Pain in extremity [Unknown]
  - Musculoskeletal discomfort [Unknown]

NARRATIVE: CASE EVENT DATE: 20250101
